FAERS Safety Report 15657077 (Version 1)
Quarter: 2018Q4

REPORT INFORMATION
  Report Type: Report from Study
  Country: ES (occurrence: ES)
  Receive Date: 20181126
  Receipt Date: 20181126
  Transmission Date: 20190205
  Serious: Yes (Death, Hospitalization)
  Sender: FDA-Public Use
  Company Number: ES-BRISTOL-MYERS SQUIBB COMPANY-21340187

PATIENT
  Age: 72 Year
  Sex: Male

DRUGS (2)
  1. IPILIMUMAB [Suspect]
     Active Substance: IPILIMUMAB
     Indication: METASTASES TO CENTRAL NERVOUS SYSTEM
     Dosage: 2.94 MG/KG, UNK
     Route: 042
     Dates: start: 20140811
  2. IPILIMUMAB [Suspect]
     Active Substance: IPILIMUMAB
     Indication: MALIGNANT MELANOMA
     Route: 065

REACTIONS (2)
  - General physical health deterioration [Fatal]
  - Urinary tract infection [Fatal]

NARRATIVE: CASE EVENT DATE: 20140825
